FAERS Safety Report 6842761-8 (Version None)
Quarter: 2010Q3

REPORT INFORMATION
  Report Type: 
  Country: None (occurrence: None)
  Receive Date: 20100714
  Receipt Date: 20071003
  Transmission Date: 20110219
  Serious: No
  Sender: FDA-Public Use
  Company Number: US-PFIZER INC-2007065345

PATIENT
  Sex: Male
  Weight: 100 kg

DRUGS (2)
  1. CHANTIX [Suspect]
     Indication: SMOKING CESSATION THERAPY
     Dates: start: 20070720, end: 20070731
  2. MULTI-VITAMINS [Concomitant]

REACTIONS (1)
  - PANIC ATTACK [None]
